FAERS Safety Report 21163488 (Version 2)
Quarter: 2022Q4

REPORT INFORMATION
  Report Type: Spontaneous
  Country: CA (occurrence: CA)
  Receive Date: 20220802
  Receipt Date: 20221121
  Transmission Date: 20230113
  Serious: Yes (Hospitalization, Other)
  Sender: FDA-Public Use
  Company Number: CA-ANIPHARMA-2022-CA-001542

PATIENT
  Age: 84 Year
  Sex: Male
  Weight: 67 kg

DRUGS (8)
  1. CANDESARTAN CILEXETIL [Suspect]
     Active Substance: CANDESARTAN CILEXETIL
     Indication: Hypertension
     Dosage: 4 MG DAILY / 16 MG DAILY / 32 MG DAILY
     Route: 048
  2. LANREOTIDE ACETATE [Suspect]
     Active Substance: LANREOTIDE ACETATE
     Dosage: 120 MG Q4WK / 120 MG Q4WK / 120 MG Q14D
     Route: 058
     Dates: start: 202204, end: 202204
  3. ASPIRIN [Concomitant]
     Active Substance: ASPIRIN
     Route: 065
  4. ATORVASTATIN CALCIUM [Concomitant]
     Active Substance: ATORVASTATIN CALCIUM
     Route: 065
  5. CLOPIDOGREL BISULFATE [Concomitant]
     Active Substance: CLOPIDOGREL BISULFATE
     Route: 065
  6. PANTOPRAZOLE SODIUM [Concomitant]
     Active Substance: PANTOPRAZOLE SODIUM
     Route: 065
  7. TAMSULOSIN [Concomitant]
     Active Substance: TAMSULOSIN
     Route: 065
  8. VITAMINS NOS [Concomitant]
     Active Substance: VITAMINS
     Route: 065

REACTIONS (11)
  - Orthostatic hypertension [Not Recovered/Not Resolved]
  - Vomiting [Unknown]
  - Hypotension [Unknown]
  - Asthenia [Recovering/Resolving]
  - Bradycardia [Not Recovered/Not Resolved]
  - Confusional state [Recovering/Resolving]
  - Disease progression [Not Recovered/Not Resolved]
  - Dizziness [Recovering/Resolving]
  - Fatigue [Not Recovered/Not Resolved]
  - Heart rate decreased [Unknown]
  - Hypertension [Unknown]

NARRATIVE: CASE EVENT DATE: 20210101
